FAERS Safety Report 4633555-2 (Version None)
Quarter: 2005Q2

REPORT INFORMATION
  Report Type: 
  Country: None (occurrence: None)
  Receive Date: 20050331
  Receipt Date: 20041224
  Transmission Date: 20051028
  Serious: Yes (Other)
  Sender: FDA-Public Use
  Company Number: 200416261BCC

PATIENT
  Age: 57 Year
  Sex: Male
  Weight: 81.6475 kg

DRUGS (4)
  1. ALEVE [Suspect]
     Indication: MYALGIA
     Dosage: 440 MG ONCE ORAL
     Route: 048
     Dates: start: 20041224
  2. ALEVE [Suspect]
     Indication: SINUSITIS
     Dosage: 440 MG ONCE ORAL
     Route: 048
     Dates: start: 20041224
  3. LEVAQUIN [Concomitant]
  4. MULTI-VITAMINS [Concomitant]

REACTIONS (10)
  - ANAPHYLACTIC REACTION [None]
  - COUGH [None]
  - DYSPHONIA [None]
  - DYSPNOEA [None]
  - ERYTHEMA [None]
  - OEDEMA PERIPHERAL [None]
  - RASH [None]
  - SKIN WARM [None]
  - URTICARIA [None]
  - WHEEZING [None]
